FAERS Safety Report 18889738 (Version 2)
Quarter: 2021Q2

REPORT INFORMATION
  Report Type: Report from Study
  Country: US (occurrence: US)
  Receive Date: 20210213
  Receipt Date: 20210419
  Transmission Date: 20210717
  Serious: No
  Sender: FDA-Public Use
  Company Number: US-TAKEDA-2021TUS007125

PATIENT
  Sex: Male
  Weight: 48.75 kg

DRUGS (27)
  1. CHLORPHENIRAMINE C [Concomitant]
     Active Substance: CHLORPHENIRAMINE MALEATE
  2. MESALAMINE. [Concomitant]
     Active Substance: MESALAMINE
  3. HUMAN NORMAL IMMUNOGLOBULIN; LIQUID 20 (HUMAN NORMAL IMMUNOGLOBULIN) [Suspect]
     Active Substance: HUMAN IMMUNOGLOBULIN G
     Indication: CROHN^S DISEASE
     Dosage: 16 GRAM, 1/WEEK
     Route: 058
     Dates: start: 20210128
  4. ACETAMINOPHEN. [Concomitant]
     Active Substance: ACETAMINOPHEN
  5. NORMAL SALINE [Concomitant]
     Active Substance: SODIUM CHLORIDE
  6. SOLU?CORTEF [Concomitant]
     Active Substance: HYDROCORTISONE SODIUM SUCCINATE
  7. VITAMIN D3 [Concomitant]
     Active Substance: CHOLECALCIFEROL
  8. PROBIOTICS NOS [Concomitant]
     Active Substance: PROBIOTICS NOS
  9. ENTYVIO [Concomitant]
     Active Substance: VEDOLIZUMAB
  10. GAMMAGARD [Suspect]
     Active Substance: HUMAN IMMUNOGLOBULIN G
     Indication: IMMUNODEFICIENCY COMMON VARIABLE
     Route: 065
  11. LIPITOR [Concomitant]
     Active Substance: ATORVASTATIN CALCIUM
  12. ASPIRIN [ACETYLSALICYLIC ACID] [Concomitant]
     Active Substance: ASPIRIN
  13. GAMMAGARD [Suspect]
     Active Substance: HUMAN IMMUNOGLOBULIN G
     Indication: CROHN^S DISEASE
  14. DIPHENHYDRAMINE. [Concomitant]
     Active Substance: DIPHENHYDRAMINE
  15. ESCITALOPRAM [Concomitant]
     Active Substance: ESCITALOPRAM OXALATE
  16. SYMBICORT [Concomitant]
     Active Substance: BUDESONIDE\FORMOTEROL FUMARATE DIHYDRATE
  17. LEVOTHYROXINE. [Concomitant]
     Active Substance: LEVOTHYROXINE
  18. ENTERAGAM [Concomitant]
     Active Substance: DIETARY SUPPLEMENT
  19. HUMAN NORMAL IMMUNOGLOBULIN; LIQUID 20 (HUMAN NORMAL IMMUNOGLOBULIN) [Suspect]
     Active Substance: HUMAN IMMUNOGLOBULIN G
     Indication: IMMUNODEFICIENCY COMMON VARIABLE
  20. TAMSULOSIN [Concomitant]
     Active Substance: TAMSULOSIN
  21. LMX4 [Concomitant]
     Active Substance: LIDOCAINE
  22. CYANOCOBALAMIN. [Concomitant]
     Active Substance: CYANOCOBALAMIN
  23. CHARCOAL ACTIVATED [Concomitant]
     Active Substance: ACTIVATED CHARCOAL
  24. EPINEPHRINE. [Concomitant]
     Active Substance: EPINEPHRINE
  25. VITAMIN C [Concomitant]
     Active Substance: ASCORBIC ACID
  26. MONTELUKAST [Concomitant]
     Active Substance: MONTELUKAST SODIUM
  27. VITAMINS NOS [Concomitant]
     Active Substance: VITAMINS

REACTIONS (2)
  - Mucous stools [Unknown]
  - Diarrhoea [Unknown]
